FAERS Safety Report 4545182-6 (Version None)
Quarter: 2004Q4

REPORT INFORMATION
  Report Type: 
  Country: None (occurrence: None)
  Receive Date: 20041222
  Receipt Date: 20041007
  Transmission Date: 20050328
  Serious: Yes (Hospitalization, Other)
  Sender: FDA-Public Use
  Company Number: USA040977140

PATIENT
  Age: 45 Year
  Sex: Female

DRUGS (1)
  1. HUMALOG [Suspect]
     Dates: start: 19840101

REACTIONS (3)
  - DIABETIC KETOACIDOSIS [None]
  - VOMITING [None]
  - WHITE BLOOD CELL COUNT [None]
